FAERS Safety Report 5469647-8 (Version None)
Quarter: 2007Q3

REPORT INFORMATION
  Report Type: 
  Country: None (occurrence: None)
  Receive Date: 20070927
  Receipt Date: 20070921
  Transmission Date: 20080115
  Serious: Yes (Other)
  Sender: FDA-Public Use
  Company Number: B0488748A

PATIENT
  Sex: Female

DRUGS (1)
  1. NYTOL [Suspect]
     Indication: DRUG USE FOR UNKNOWN INDICATION
     Dosage: 60TAB PER DAY
     Route: 048

REACTIONS (2)
  - COLOUR BLINDNESS [None]
  - MYDRIASIS [None]
